FAERS Safety Report 8964089 (Version 2)
Quarter: 2012Q4

REPORT INFORMATION
  Report Type: Report from Study
  Country: DE (occurrence: DE)
  Receive Date: 20121213
  Receipt Date: 20121221
  Transmission Date: 20130627
  Serious: Yes (Hospitalization)
  Sender: FDA-Public Use
  Company Number: DE-GLAXOSMITHKLINE-B0768918A

PATIENT
  Age: 77 Year
  Sex: Female
  Weight: 65 kg

DRUGS (2)
  1. TOPOTECAN [Suspect]
     Indication: OVARIAN CANCER RECURRENT
     Dosage: 2.03MG Per day
     Route: 042
     Dates: start: 20111107, end: 20111111
  2. BLINDED STUDY MEDICATION [Suspect]
     Indication: OVARIAN CANCER RECURRENT
     Dosage: 800MG Per day
     Route: 048
     Dates: start: 20111112, end: 20111121

REACTIONS (4)
  - Ascites [Recovered/Resolved]
  - Leukopenia [Recovered/Resolved]
  - Impaired gastric emptying [Recovered/Resolved]
  - Hiatus hernia [Not Recovered/Not Resolved]
